FAERS Safety Report 6138614-3 (Version None)
Quarter: 2009Q1

REPORT INFORMATION
  Report Type: 
  Country: None (occurrence: None)
  Receive Date: 20090331
  Receipt Date: 20090311
  Transmission Date: 20090719
  Serious: Yes (Hospitalization)
  Sender: FDA-Public Use
  Company Number: JP-PFIZER INC-2009153704

PATIENT

DRUGS (5)
  1. LIPITOR [Suspect]
     Indication: HYPERLIPIDAEMIA
     Dosage: 10 MG, UNK
     Route: 048
     Dates: end: 20081022
  2. ASPIRIN [Suspect]
     Dosage: 100 MG, UNK
     Route: 048
     Dates: end: 20081022
  3. AMLODIPINE [Suspect]
     Dosage: 5 MG, UNK
     Route: 048
     Dates: end: 20081022
  4. ARTIST [Suspect]
     Dosage: 10 MG, UNK
     Route: 048
     Dates: end: 20081022
  5. MUCOSTA [Suspect]
     Dosage: 100 MG, UNK
     Route: 048
     Dates: end: 20081022

REACTIONS (1)
  - LIVER DISORDER [None]
